FAERS Safety Report 11833570 (Version 11)
Quarter: 2016Q1

REPORT INFORMATION
  Report Type: Spontaneous
  Country: US (occurrence: US)
  Receive Date: 20151214
  Receipt Date: 20160219
  Transmission Date: 20160525
  Serious: Yes (Other)
  Sender: FDA-Public Use
  Company Number: US-SUNOVION-2015SUN001223

PATIENT
  Sex: Male

DRUGS (1)
  1. APTIOM [Suspect]
     Active Substance: ESLICARBAZEPINE ACETATE
     Indication: SIMPLE PARTIAL SEIZURES
     Dosage: UNK
     Route: 048

REACTIONS (10)
  - Seizure [Unknown]
  - Simple partial seizures [Unknown]
  - Fall [Unknown]
  - Accident [Unknown]
  - Sensory disturbance [Unknown]
  - Visual impairment [Unknown]
  - Cerebral disorder [Unknown]
  - Postictal state [Unknown]
  - Balance disorder [Unknown]
  - Photophobia [Unknown]
